FAERS Safety Report 8993384 (Version 2)
Quarter: 2013Q2

REPORT INFORMATION
  Report Type: Spontaneous
  Country: US (occurrence: US)
  Receive Date: 20130102
  Receipt Date: 20130624
  Transmission Date: 20140414
  Serious: Yes (Other)
  Sender: FDA-Public Use
  Company Number: CHPA2012US025686

PATIENT
  Age: 79 Year
  Sex: Male

DRUGS (3)
  1. EXCEDRIN EXTRA STRENGTH [Suspect]
     Indication: HEADACHE
     Dosage: 2 DF, PRN
     Route: 048
     Dates: end: 2011
  2. EXCEDRIN EXTRA STRENGTH [Suspect]
     Indication: PAIN
  3. REFRESH LIQUIGEL [Concomitant]
     Indication: DRY EYE
     Dosage: UNK, QID
     Route: 047
     Dates: start: 2012

REACTIONS (5)
  - Cataract [Recovered/Resolved]
  - Glaucoma [Recovered/Resolved]
  - Dizziness [Recovered/Resolved]
  - Headache [Unknown]
  - Eye injury [Unknown]
